FAERS Safety Report 6615364-8 (Version None)
Quarter: 2010Q1

REPORT INFORMATION
  Report Type: 
  Country: None (occurrence: None)
  Receive Date: 20100305
  Receipt Date: 20090903
  Transmission Date: 20100710
  Serious: No
  Sender: FDA-Public Use
  Company Number: A0805801A

PATIENT
  Age: 71 Year
  Sex: Male

DRUGS (4)
  1. ROPINIROLE [Suspect]
     Indication: PARKINSON'S DISEASE
     Dosage: 1.5MG TWICE PER DAY
     Route: 048
     Dates: start: 20090801
  2. MULTIPLE MEDICATIONS [Concomitant]
  3. GLAUCOMA EYE DROPS (UNSPECIFIED) [Concomitant]
  4. PAIN MEDICATION [Concomitant]

REACTIONS (4)
  - ASTHENIA [None]
  - MENTAL IMPAIRMENT [None]
  - NAUSEA [None]
  - WITHDRAWAL SYNDROME [None]
